FAERS Safety Report 18135289 (Version 1)
Quarter: 2020Q3

REPORT INFORMATION
  Report Type: Spontaneous
  Country: CN (occurrence: CN)
  Receive Date: 20200811
  Receipt Date: 20200811
  Transmission Date: 20201103
  Serious: Yes (Life-Threatening, Hospitalization)
  Sender: FDA-Public Use
  Company Number: CN-AVION PHARMACEUTICALS, LLC-2088457

PATIENT
  Age: 38 Year
  Sex: Male

DRUGS (1)
  1. GLOPERBA [Suspect]
     Active Substance: COLCHICINE
     Indication: INTENTIONAL OVERDOSE
     Route: 048

REACTIONS (15)
  - Haematochezia [Recovered/Resolved]
  - Blood creatine phosphokinase increased [Recovered/Resolved]
  - Blood fibrinogen decreased [Recovered/Resolved]
  - Myelosuppression [Recovered/Resolved]
  - Oropharyngeal pain [Recovered/Resolved]
  - Restlessness [Recovered/Resolved]
  - Alopecia [Not Recovered/Not Resolved]
  - Aspartate aminotransferase increased [Recovered/Resolved]
  - Prothrombin time prolonged [Recovered/Resolved]
  - Abdominal distension [Recovered/Resolved]
  - Diarrhoea [Recovered/Resolved]
  - Nausea [Recovered/Resolved]
  - Coagulopathy [Recovered/Resolved]
  - Myoglobin blood increased [Recovered/Resolved]
  - Initial insomnia [Recovered/Resolved]
